FAERS Safety Report 16795426 (Version 2)
Quarter: 2019Q3

REPORT INFORMATION
  Report Type: Spontaneous
  Country: US (occurrence: US)
  Receive Date: 20190911
  Receipt Date: 20190912
  Transmission Date: 20191005
  Serious: Yes (Disabling, Other)
  Sender: FDA-Public Use
  Company Number: US-ROCHE-2402185

PATIENT
  Sex: Female

DRUGS (1)
  1. LUCENTIS [Suspect]
     Active Substance: RANIBIZUMAB
     Indication: MACULAR DEGENERATION
     Route: 050
     Dates: start: 20170405

REACTIONS (3)
  - Eye infection [Not Recovered/Not Resolved]
  - Blindness unilateral [Unknown]
  - Product quality issue [Unknown]
